FAERS Safety Report 15305546 (Version 1)
Quarter: 2018Q3

REPORT INFORMATION
  Report Type: Report from Study
  Country: ES (occurrence: ES)
  Receive Date: 20180822
  Receipt Date: 20180822
  Transmission Date: 20181010
  Serious: Yes (Hospitalization)
  Sender: FDA-Public Use
  Company Number: ES-TEVA-2018-ES-945355

PATIENT
  Age: 51 Year
  Sex: Female

DRUGS (3)
  1. DEXKETOPROFENO [Suspect]
     Active Substance: DEXKETOPROFEN
     Indication: PAIN
     Dosage: DOSAGE UNIT FREQUENCY: 150 MG?MILLIGRAMS || DOSAGE PER DOSE: 50 MG?MILLIGRAMS || NO. SHOTS PER FREQU
     Route: 042
     Dates: start: 20150913, end: 20150925
  2. IBUPROFENO (1769A) [Suspect]
     Active Substance: IBUPROFEN
     Indication: SURGERY
     Route: 048
     Dates: start: 20150914, end: 20150923
  3. METAMIZOL [Suspect]
     Active Substance: METAMIZOLE SODIUM
     Indication: PAIN
     Dosage: DOSAGE UNIT FREQUENCY: 6 G?GRAMS || DOSAGE PER DOSE: 2 G?GRAMS || NO. SHOTS PER FREQUENCY UNIT: 3 ||
     Dates: start: 20150909, end: 20150923

REACTIONS (1)
  - Drug reaction with eosinophilia and systemic symptoms [Recovered/Resolved]

NARRATIVE: CASE EVENT DATE: 20150914
